FAERS Safety Report 26000866 (Version 1)
Quarter: 2025Q4

REPORT INFORMATION
  Report Type: Spontaneous
  Country: US (occurrence: None)
  Receive Date: 20251105
  Receipt Date: 20251105
  Transmission Date: 20260117
  Serious: Yes (Hospitalization)
  Sender: FDA-CTU
  Company Number: None

PATIENT
  Age: 45 Year
  Sex: Female
  Weight: 80.55 kg

DRUGS (2)
  1. FERAHEME [Suspect]
     Active Substance: FERUMOXYTOL NON-STOICHIOMETRIC MAGNETITE
     Indication: Iron deficiency anaemia
     Dosage: OTHER FREQUENCY : IV X 2 DOSES;?
     Route: 042
     Dates: start: 20251030, end: 20251030
  2. FERAHEME [Suspect]
     Active Substance: FERUMOXYTOL NON-STOICHIOMETRIC MAGNETITE
     Indication: Blood loss anaemia

REACTIONS (6)
  - Dyspnoea [None]
  - Abdominal pain [None]
  - Back pain [None]
  - Nausea [None]
  - Infusion related reaction [None]
  - Hypoxia [None]

NARRATIVE: CASE EVENT DATE: 20251030
